FAERS Safety Report 10170238 (Version 1)
Quarter: 2014Q2

REPORT INFORMATION
  Report Type: Spontaneous
  Country: AT (occurrence: AT)
  Receive Date: 20140513
  Receipt Date: 20140513
  Transmission Date: 20141212
  Serious: Yes (Other)
  Sender: FDA-Public Use
  Company Number: AT-ACTAVIS-2014-09954

PATIENT
  Age: 65 Year
  Sex: Male

DRUGS (13)
  1. QUETIAPINE (UNKNOWN) [Suspect]
     Indication: MAJOR DEPRESSION
     Dosage: 200 MG, DAILY (25-25-150 MG)
     Route: 065
  2. QUETIAPINE (UNKNOWN) [Suspect]
     Dosage: 250 MG, DAILY
     Route: 065
  3. QUETIAPINE (UNKNOWN) [Suspect]
     Dosage: 200 MG, DAILY (50-50-100 MG)
     Route: 065
  4. QUETIAPINE (UNKNOWN) [Suspect]
     Dosage: 50 MG, DAILY
     Route: 065
  5. QUETIAPINE (UNKNOWN) [Suspect]
     Dosage: 100 MG, DAILY (25-25-50 MG)
     Route: 065
  6. PHENPROCOUMON [Concomitant]
     Indication: PRODUCT USED FOR UNKNOWN INDICATION
     Dosage: 3 MG, UNK
     Route: 065
  7. NEBIVOLOL [Concomitant]
     Indication: PRODUCT USED FOR UNKNOWN INDICATION
     Dosage: 5 MG, UNK
     Route: 065
  8. LISINOPRIL [Concomitant]
     Indication: PRODUCT USED FOR UNKNOWN INDICATION
     Dosage: 20 MG, UNK
     Route: 065
  9. HYDROCHLOROTHIAZIDE [Concomitant]
     Indication: PRODUCT USED FOR UNKNOWN INDICATION
     Dosage: 25 MG, UNK
     Route: 065
  10. SIMVASTATIN [Concomitant]
     Indication: PRODUCT USED FOR UNKNOWN INDICATION
     Dosage: 20 MG, UNK
     Route: 065
  11. PANTOPRAZOLE [Concomitant]
     Indication: PRODUCT USED FOR UNKNOWN INDICATION
     Dosage: 40 MG, UNK
     Route: 065
  12. VENLAFAXINE [Concomitant]
     Indication: MAJOR DEPRESSION
     Dosage: 225 MG, DAILY
     Route: 065
  13. VENLAFAXINE [Concomitant]
     Dosage: 75 MG, UNK
     Route: 065

REACTIONS (1)
  - Restless legs syndrome [Recovered/Resolved]
